FAERS Safety Report 9258908 (Version 1)
Quarter: 2013Q2

REPORT INFORMATION
  Report Type: Spontaneous
  Country: BR (occurrence: BR)
  Receive Date: 20130426
  Receipt Date: 20130426
  Transmission Date: 20140414
  Serious: Yes (Other)
  Sender: FDA-Public Use
  Company Number: BR-009507513-1304BRA015585

PATIENT
  Age: 53 Year
  Sex: Female
  Weight: 54 kg

DRUGS (8)
  1. REMERON SOLTAB [Suspect]
     Indication: DEPRESSION
     Dosage: UNK, QD
     Route: 048
     Dates: start: 2010
  2. MAREVAN [Concomitant]
     Dosage: UNK
     Dates: start: 2005
  3. DEPAKOTE [Concomitant]
     Indication: CONVULSION
     Dosage: UNK, QD
     Dates: start: 2010
  4. RISPERIDONE [Concomitant]
     Dosage: UNK
     Dates: start: 2006, end: 201303
  5. QUETIAPINE FUMARATE [Concomitant]
     Dosage: UNK
     Dates: start: 201303
  6. SELO-ZOK [Concomitant]
     Dosage: 100 MG, BID
     Dates: start: 2012
  7. OMEPRAZOLE [Concomitant]
     Indication: PROPHYLAXIS AGAINST GASTROINTESTINAL ULCER
     Dosage: UNK, BID
     Dates: start: 2011
  8. ENALAPRIL MALEATE [Suspect]
     Indication: HYPERTENSION
     Dosage: UNK, BID
     Route: 048
     Dates: start: 2005, end: 20130414

REACTIONS (3)
  - Hypertensive crisis [Not Recovered/Not Resolved]
  - Joint stiffness [Recovered/Resolved]
  - Aggression [Recovering/Resolving]
